FAERS Safety Report 21513297 (Version 1)
Quarter: 2022Q4

REPORT INFORMATION
  Report Type: Spontaneous
  Country: US (occurrence: US)
  Receive Date: 20221027
  Receipt Date: 20221027
  Transmission Date: 20230113
  Serious: Yes (Other)
  Sender: FDA-Public Use
  Company Number: US-Shilpa Medicare Limited-SML-US-2022-01384

PATIENT
  Age: 74 Year
  Sex: Male

DRUGS (6)
  1. DOCETAXEL [Suspect]
     Active Substance: DOCETAXEL
     Indication: Hormone-refractory prostate cancer
  2. YTTRIUM CHLORIDE Y-90 [Suspect]
     Active Substance: YTTRIUM CHLORIDE Y-90
     Indication: Hormone-refractory prostate cancer
     Dosage: 122.6 GY, 13.36 GBQ
  3. BICALUTAMIDE [Suspect]
     Active Substance: BICALUTAMIDE
     Indication: Hormone-refractory prostate cancer
  4. LEUPROLIDE ACETATE [Suspect]
     Active Substance: LEUPROLIDE ACETATE
     Indication: Hormone-refractory prostate cancer
  5. CARBOPLATIN [Suspect]
     Active Substance: CARBOPLATIN
     Indication: Hormone-refractory prostate cancer
  6. CYCLOPHOSPHAMIDE [Suspect]
     Active Substance: CYCLOPHOSPHAMIDE
     Indication: Hormone-refractory prostate cancer

REACTIONS (2)
  - Abdominal pain [Unknown]
  - International normalised ratio increased [Unknown]
